FAERS Safety Report 9677120 (Version 2)
Quarter: 2014Q1

REPORT INFORMATION
  Report Type: Spontaneous
  Country: BR (occurrence: BR)
  Receive Date: 20131108
  Receipt Date: 20140206
  Transmission Date: 20141002
  Serious: Yes (Hospitalization, Other)
  Sender: FDA-Public Use
  Company Number: BR-ASTRAZENECA-2013SE80787

PATIENT
  Age: 638 Month
  Sex: Female

DRUGS (4)
  1. BRILINTA [Suspect]
     Indication: CORONARY ARTERIAL STENT INSERTION
     Route: 048
     Dates: start: 201212, end: 201306
  2. CARVEDILOL [Concomitant]
     Indication: BLOOD PRESSURE FLUCTUATION
     Dates: start: 201212
  3. LIPITOR [Concomitant]
     Indication: BLOOD CHOLESTEROL INCREASED
     Dates: start: 201212
  4. ASA [Concomitant]
     Indication: ANTICOAGULANT THERAPY
     Dates: start: 201212

REACTIONS (1)
  - Patient-device incompatibility [Recovered/Resolved]
